FAERS Safety Report 5923151-9 (Version None)
Quarter: 2008Q4

REPORT INFORMATION
  Report Type: 
  Country: None (occurrence: None)
  Receive Date: 20081015
  Receipt Date: 20081008
  Transmission Date: 20090506
  Serious: Yes (Other)
  Sender: FDA-Public Use
  Company Number: 035058

PATIENT
  Age: 62 Year
  Sex: Female

DRUGS (4)
  1. METHOTREXATE [Suspect]
     Dosage: 12.5 MG, 1/WEEK, ORAL
     Route: 048
     Dates: start: 19920101
  2. ENBREL [Suspect]
     Indication: RHEUMATOID ARTHRITIS
     Dosage: 50 MG, 2/WEEK, SUBCUTANEOUS
     Route: 058
     Dates: start: 19990315
  3. PREDNISONE [Concomitant]
  4. LEUCOVORIN CALCIUM [Concomitant]

REACTIONS (5)
  - ABDOMINAL PAIN [None]
  - CHILLS [None]
  - COUGH [None]
  - PNEUMONIA [None]
  - PYREXIA [None]
